FAERS Safety Report 6002233-X (Version None)
Quarter: 2008Q4

REPORT INFORMATION
  Report Type: 
  Country: None (occurrence: None)
  Receive Date: 20081212
  Receipt Date: 20081212
  Transmission Date: 20090506
  Serious: Yes (Other)
  Sender: FDA-Public Use
  Company Number: 2008AL012082

PATIENT
  Age: 35 Year
  Sex: Female
  Weight: 72.1219 kg

DRUGS (5)
  1. DIGOXIN [Suspect]
     Indication: HEART RATE INCREASED
     Dosage: 0.125MG, DAILY, PO
     Route: 048
     Dates: start: 19980101, end: 20080201
  2. VERAPAMIL [Concomitant]
  3. HYDROCHLOROTHIAZIDE [Concomitant]
  4. TRAZODONE [Concomitant]
  5. AMBIEN [Concomitant]

REACTIONS (2)
  - CONDITION AGGRAVATED [None]
  - HEART RATE INCREASED [None]
